FAERS Safety Report 20362597 (Version 1)
Quarter: 2022Q1

REPORT INFORMATION
  Report Type: Spontaneous
  Country: US (occurrence: None)
  Receive Date: 20220120
  Receipt Date: 20220120
  Transmission Date: 20220423
  Serious: Yes (Other)
  Sender: FDA-Public Use
  Company Number: None

PATIENT
  Age: 65 Year
  Sex: Female
  Weight: 58.05 kg

DRUGS (9)
  1. .DELTA.8-TETRAHYDROCANNABINOL\HERBALS [Suspect]
     Active Substance: .DELTA.8-TETRAHYDROCANNABINOL\HERBALS
     Indication: Pain
     Dosage: FREQUENCY : DAILY;?
     Route: 048
     Dates: start: 20220119, end: 20220119
  2. .DELTA.8-TETRAHYDROCANNABINOL\HERBALS [Suspect]
     Active Substance: .DELTA.8-TETRAHYDROCANNABINOL\HERBALS
     Indication: Stress
  3. VALTREX [Concomitant]
     Active Substance: VALACYCLOVIR HYDROCHLORIDE
  4. RIPINIROLE HCL [Concomitant]
  5. OMEPRAZOLE [Concomitant]
     Active Substance: OMEPRAZOLE
  6. SINGULAIR [Concomitant]
     Active Substance: MONTELUKAST SODIUM
  7. ATORVASTATIN [Concomitant]
     Active Substance: ATORVASTATIN
  8. LISINOPRIL [Concomitant]
     Active Substance: LISINOPRIL
  9. NATURE^S BOUNTY WOMEN^S MULTI VITAMINS [Concomitant]

REACTIONS (8)
  - Feeling abnormal [None]
  - Dizziness [None]
  - Limb discomfort [None]
  - Disorientation [None]
  - Balance disorder [None]
  - Visual impairment [None]
  - Feeling cold [None]
  - Dyspnoea [None]

NARRATIVE: CASE EVENT DATE: 20220119
